FAERS Safety Report 6279861-X (Version None)
Quarter: 2009Q3

REPORT INFORMATION
  Report Type: 
  Country: None (occurrence: None)
  Receive Date: 20090721
  Receipt Date: 20090708
  Transmission Date: 20100115
  Serious: No
  Sender: FDA-Public Use
  Company Number: 2009-200316-NL

PATIENT
  Sex: Male

DRUGS (1)
  1. ETONOGESTREL [Suspect]
     Dosage: DF TRANSPLACENTAL
     Route: 064
     Dates: start: 20020101, end: 20020731

REACTIONS (5)
  - CAESAREAN SECTION [None]
  - FACIOSCAPULOHUMERAL MUSCULAR DYSTROPHY [None]
  - MATERNAL DRUGS AFFECTING FOETUS [None]
  - PREMATURE BABY [None]
  - VISUAL IMPAIRMENT [None]
